FAERS Safety Report 7491810-5 (Version None)
Quarter: 2011Q2

REPORT INFORMATION
  Report Type: 
  Country: None (occurrence: None)
  Receive Date: 20110519
  Receipt Date: 20110512
  Transmission Date: 20111010
  Serious: Yes (Hospitalization)
  Sender: FDA-Public Use
  Company Number: JP-MERCK-1105USA02583

PATIENT
  Sex: Female

DRUGS (8)
  1. PRIMAXIN [Suspect]
     Route: 041
     Dates: start: 20110422, end: 20110427
  2. PRIMAXIN [Suspect]
     Route: 041
     Dates: start: 20110422, end: 20110427
  3. PRIMAXIN [Suspect]
     Indication: PNEUMONIA
     Route: 041
     Dates: start: 20110501, end: 20110503
  4. BENZALIN [Concomitant]
     Route: 048
  5. ALEVIATIN [Concomitant]
     Route: 048
  6. VALPROIC ACID [Concomitant]
     Route: 048
  7. AMINO ACIDS (UNSPECIFIED) AND CARBOHYDRATES (UNSPECIFIED) AND ELECTROL [Concomitant]
     Route: 048
  8. PRIMAXIN [Suspect]
     Indication: PYREXIA
     Route: 041
     Dates: start: 20110501, end: 20110503

REACTIONS (4)
  - GAMMA-GLUTAMYLTRANSFERASE INCREASED [None]
  - RASH GENERALISED [None]
  - PLATELET COUNT DECREASED [None]
  - WHITE BLOOD CELL COUNT INCREASED [None]
